FAERS Safety Report 20826713 (Version 1)
Quarter: 2022Q2

REPORT INFORMATION
  Report Type: Report from Study
  Country: US (occurrence: US)
  Receive Date: 20220513
  Receipt Date: 20220513
  Transmission Date: 20220721
  Serious: Yes (Hospitalization)
  Sender: FDA-Public Use
  Company Number: US-SA-SAC20220511001746

PATIENT

DRUGS (2)
  1. ISATUXIMAB [Suspect]
     Active Substance: ISATUXIMAB
     Indication: Amyloidosis
     Dosage: UNK
  2. DEXAMETHASONE [Suspect]
     Active Substance: DEXAMETHASONE
     Indication: Amyloidosis
     Dosage: UNK

REACTIONS (9)
  - Urinary tract infection [Unknown]
  - Cardiac failure acute [Unknown]
  - Dyspnoea [Unknown]
  - Syncope [Unknown]
  - Oedema [Unknown]
  - Acute kidney injury [Unknown]
  - Hypokalaemia [Unknown]
  - Electrolyte imbalance [Unknown]
  - Urine output decreased [Unknown]
